FAERS Safety Report 6951056-3 (Version None)
Quarter: 2010Q3

REPORT INFORMATION
  Report Type: 
  Country: None (occurrence: None)
  Receive Date: 20100828
  Receipt Date: 20100310
  Transmission Date: 20110219
  Serious: No
  Sender: FDA-Public Use
  Company Number: US-ABBOTT-10P-163-0631604-00

PATIENT
  Sex: Female
  Weight: 83.99 kg

DRUGS (11)
  1. NIASPAN [Suspect]
     Indication: BLOOD CHOLESTEROL INCREASED
     Dates: start: 20091217
  2. ASPIRIN [Concomitant]
     Indication: CEREBROVASCULAR ACCIDENT PROPHYLAXIS
  3. DIOVAN [Concomitant]
     Indication: HYPERTENSION
  4. DIAZIDE [Concomitant]
     Indication: HYPERTENSION
  5. LYRICA [Concomitant]
     Indication: HYPOAESTHESIA
  6. PRAVASTATIN [Concomitant]
     Indication: BLOOD CHOLESTEROL INCREASED
  7. VITAMIN D [Concomitant]
     Indication: VITAMIN SUPPLEMENTATION
  8. ZANTAC [Concomitant]
     Indication: DYSPEPSIA
  9. UNKNOWN HORMONE REPLACEMENT [Concomitant]
     Indication: HORMONE REPLACEMENT THERAPY
  10. DIAZEPAM [Concomitant]
     Indication: MUSCLE SPASMS
     Dates: start: 20100101
  11. OXYCODONE [Concomitant]
     Indication: SURGERY
     Dates: start: 20100101

REACTIONS (6)
  - DYSPEPSIA [None]
  - ERYTHEMA [None]
  - FLUSHING [None]
  - HEADACHE [None]
  - HOT FLUSH [None]
  - NIGHT SWEATS [None]
